FAERS Safety Report 5079462-5 (Version None)
Quarter: 2006Q3

REPORT INFORMATION
  Report Type: 
  Country: None (occurrence: None)
  Receive Date: 20060814
  Receipt Date: 20060202
  Transmission Date: 20061208
  Serious: Yes (Death, Hospitalization)
  Sender: FDA-Public Use
  Company Number: GB-BRISTOL-MYERS SQUIBB COMPANY-13472832

PATIENT
  Age: 57 Year
  Sex: Male

DRUGS (6)
  1. ENDOXAN [Suspect]
     Indication: CHRONIC LYMPHOCYTIC LEUKAEMIA REFRACTORY
     Dates: start: 20041201, end: 20050501
  2. MABCAMPATH [Suspect]
     Indication: CHRONIC LYMPHOCYTIC LEUKAEMIA REFRACTORY
     Route: 058
     Dates: start: 20050810, end: 20050923
  3. FLUDARA [Suspect]
     Indication: CHRONIC LYMPHOCYTIC LEUKAEMIA REFRACTORY
     Dates: start: 20041201, end: 20050501
  4. MITOXANTRONE [Suspect]
     Indication: CHRONIC LYMPHOCYTIC LEUKAEMIA REFRACTORY
     Dates: start: 20041201, end: 20050501
  5. LANSOPRAZOLE [Concomitant]
  6. ACYCLOVIR [Concomitant]

REACTIONS (5)
  - EPSTEIN-BARR VIRUS INFECTION [None]
  - HEPATIC ENZYME [None]
  - HEPATIC ENZYME INCREASED [None]
  - LYMPHOMA TRANSFORMATION [None]
  - MALAISE [None]
